FAERS Safety Report 24127037 (Version 2)
Quarter: 2025Q3

REPORT INFORMATION
  Report Type: Report from Study
  Country: US (occurrence: US)
  Receive Date: 20240723
  Receipt Date: 20250722
  Transmission Date: 20251021
  Serious: No
  Sender: VANDA PHARMACEUTICALS
  Company Number: US-VANDA PHARMACEUTICALS, INC-2024TASUS007321

PATIENT
  Sex: Male

DRUGS (1)
  1. HETLIOZ [Suspect]
     Active Substance: TASIMELTEON
     Indication: Non-24-hour sleep-wake disorder
     Dosage: 20 MILLIGRAM, QD, NIGHTLY (1 HOUR BEFORE BEDTIME AT THE SAME TIME EVERY NIGHT WITHOUT FOOD)
     Route: 048
     Dates: start: 20220226

REACTIONS (2)
  - Sleep disorder [Unknown]
  - Product dose omission issue [Unknown]
